FAERS Safety Report 4457291-0 (Version None)
Quarter: 2004Q3

REPORT INFORMATION
  Report Type: 
  Country: None (occurrence: None)
  Receive Date: 20040922
  Receipt Date: 20040803
  Transmission Date: 20050211
  Serious: Yes (Other)
  Sender: FDA-Public Use
  Company Number: 2004052509

PATIENT
  Sex: Female
  Weight: 65.7716 kg

DRUGS (7)
  1. GEODON [Suspect]
     Indication: BIPOLAR DISORDER
     Dosage: 80 MG (80 MG, 1 IN 1 D), ORAL
     Route: 048
     Dates: start: 20040601
  2. METHYLPREDNISOLONE [Suspect]
     Indication: HYPERSENSITIVITY
     Dates: start: 20040101
  3. LEVOTHYROXINE SODIUM [Suspect]
     Indication: ILL-DEFINED DISORDER
     Dosage: 50 MCG (50 MCG, 1 IN 1 D)
  4. OXCARBAZEPINE (OXCARBAZEPINE) [Suspect]
     Indication: ILL-DEFINED DISORDER
     Dates: end: 20040101
  5. METHYLPHENIDATE HCL [Concomitant]
  6. ESCITALOPRAM (ESCITALOPRAM) [Concomitant]
  7. MULTIVITAMINS (ASCORBIC ACID/ERGOCALCIFEROL/FOLIC ACID/NICOTINAMIDE/PA [Concomitant]

REACTIONS (6)
  - CHOLECYSTITIS [None]
  - CHOLELITHIASIS [None]
  - DRUG HYPERSENSITIVITY [None]
  - MANIA [None]
  - REACTION TO DRUG EXCIPIENT [None]
  - SPLENOMEGALY [None]
